FAERS Safety Report 9149314 (Version 3)
Quarter: 2013Q3

REPORT INFORMATION
  Report Type: Spontaneous
  Country: US (occurrence: US)
  Receive Date: 20130308
  Receipt Date: 20130826
  Transmission Date: 20140515
  Serious: No
  Sender: FDA-Public Use
  Company Number: US-BRISTOL-MYERS SQUIBB COMPANY-17231333

PATIENT
  Sex: Female

DRUGS (1)
  1. KENALOG-40 INJ [Suspect]
     Dosage: SECOND INJ:25SEP12
     Route: 042
     Dates: start: 201205

REACTIONS (3)
  - Accidental exposure to product [Unknown]
  - Skin discolouration [Unknown]
  - Contusion [Recovered/Resolved]
